FAERS Safety Report 18695017 (Version 1)
Quarter: 2021Q1

REPORT INFORMATION
  Report Type: Spontaneous
  Country: CN (occurrence: CN)
  Receive Date: 20210104
  Receipt Date: 20210104
  Transmission Date: 20210419
  Serious: Yes (Other)
  Sender: FDA-Public Use
  Company Number: CN-PFIZER INC-2020520535

PATIENT
  Age: 26 Year
  Sex: Female
  Weight: 45 kg

DRUGS (2)
  1. SODIUM CHLORIDE + GLUCOSE [Concomitant]
     Dosage: 600 ML, 1X/DAY
     Route: 041
     Dates: start: 20201211, end: 20201211
  2. ANZATAX (PACLITAXEL) [Suspect]
     Active Substance: PACLITAXEL
     Indication: BORDERLINE OVARIAN TUMOUR
     Dosage: 240 MG, 1X/DAY
     Route: 041
     Dates: start: 20201211, end: 20201211

REACTIONS (5)
  - Hyperhidrosis [Recovering/Resolving]
  - Throat tightness [Recovering/Resolving]
  - Chest discomfort [Recovering/Resolving]
  - Tachypnoea [Recovering/Resolving]
  - Dyspnoea [Recovering/Resolving]

NARRATIVE: CASE EVENT DATE: 20201211
